FAERS Safety Report 8161222-X (Version None)
Quarter: 2012Q1

REPORT INFORMATION
  Report Type: 
  Country: None (occurrence: None)
  Receive Date: 20120224
  Receipt Date: 20120213
  Transmission Date: 20120608
  Serious: Yes (Other)
  Sender: FDA-Public Use
  Company Number: JP-ACCORD-012491

PATIENT
  Age: 36 Year
  Sex: Female

DRUGS (5)
  1. MYCOPHENOLATE MOFETIL [Suspect]
     Indication: IMMUNOSUPPRESSION
  2. BASILIXIMAB [Concomitant]
     Indication: IMMUNOSUPPRESSION
  3. TACROLIMUS [Suspect]
     Indication: IMMUNOSUPPRESSION
  4. PREDNISONE [Suspect]
     Indication: IMMUNOSUPPRESSION
  5. RITUXIMAB [Concomitant]
     Indication: IMMUNOSUPPRESSION
     Dosage: ADMINISTRATION AT 14 DAYS.
     Route: 042

REACTIONS (1)
  - HERPES ZOSTER OTICUS [None]
